FAERS Safety Report 14384046 (Version 2)
Quarter: 2018Q4

REPORT INFORMATION
  Report Type: Spontaneous
  Country: US (occurrence: US)
  Receive Date: 20180115
  Receipt Date: 20181012
  Transmission Date: 20190204
  Serious: No
  Sender: FDA-Public Use
  Company Number: US-PFIZER INC-2018014405

PATIENT
  Age: 81 Year
  Sex: Male

DRUGS (2)
  1. EUCRISA [Suspect]
     Active Substance: CRISABOROLE
     Indication: ECZEMA
  2. EUCRISA [Suspect]
     Active Substance: CRISABOROLE
     Indication: DERMATITIS PSORIASIFORM
     Dosage: UNK
     Dates: start: 2018

REACTIONS (2)
  - Eczema [Recovering/Resolving]
  - Drug ineffective for unapproved indication [Unknown]
